FAERS Safety Report 11128152 (Version 1)
Quarter: 2015Q2

REPORT INFORMATION
  Report Type: Report from Study
  Country: BR (occurrence: BR)
  Receive Date: 20150521
  Receipt Date: 20150521
  Transmission Date: 20150821
  Serious: Yes (Other)
  Sender: FDA-Public Use
  Company Number: BR-AMGEN-BRACT2015001988

PATIENT
  Sex: Female

DRUGS (5)
  1. PROLIA [Suspect]
     Active Substance: DENOSUMAB
     Indication: OSTEOPOROSIS
     Dosage: UNK, Q6MO
     Route: 058
     Dates: start: 20140707
  2. PARIET [Concomitant]
     Active Substance: RABEPRAZOLE SODIUM
     Indication: GASTROOESOPHAGEAL REFLUX DISEASE
     Dosage: UNK, QD
     Route: 048
  3. DAFLON                             /00426001/ [Concomitant]
     Active Substance: DIOSMIN
     Indication: ILL-DEFINED DISORDER
     Dosage: UNK, BID
     Route: 048
  4. DAFLON                             /00426001/ [Concomitant]
     Active Substance: DIOSMIN
     Indication: VARICOSE VEIN
  5. RITMONORM [Concomitant]
     Active Substance: PROPAFENONE HYDROCHLORIDE
     Indication: BLOOD PRESSURE ABNORMAL
     Dosage: UNK, BID
     Route: 048
     Dates: start: 2011

REACTIONS (11)
  - Swelling [Recovering/Resolving]
  - Malaise [Recovered/Resolved]
  - Neoplasm skin [Recovering/Resolving]
  - Gastritis [Not Recovered/Not Resolved]
  - Pain [Recovered/Resolved]
  - Throat irritation [Recovered/Resolved]
  - Hypertension [Recovered/Resolved]
  - Oesophagitis [Not Recovered/Not Resolved]
  - Gastrooesophageal reflux disease [Unknown]
  - Constipation [Unknown]
  - Nausea [Recovered/Resolved]

NARRATIVE: CASE EVENT DATE: 201407
